FAERS Safety Report 7710012-8 (Version None)
Quarter: 2011Q3

REPORT INFORMATION
  Report Type: 
  Country: None (occurrence: None)
  Receive Date: 20110825
  Receipt Date: 20110815
  Transmission Date: 20111222
  Serious: Yes (Other)
  Sender: FDA-Public Use
  Company Number: PHEH2011US01619

PATIENT
  Sex: Male
  Weight: 75.737 kg

DRUGS (8)
  1. EXJADE [Suspect]
     Indication: SERUM FERRITIN INCREASED
     Dosage: 1500 MG, QD
     Route: 048
     Dates: start: 20100917, end: 20110201
  2. EXJADE [Suspect]
     Indication: NEOPLASM
  3. SIMAVASTATIN [Concomitant]
  4. POTASSIUM CHLORIDE [Concomitant]
  5. VITAMIN D [Concomitant]
  6. VERAPAMIL [Concomitant]
  7. TRIAMTERENE [Concomitant]
  8. TRAVATAN Z [Concomitant]

REACTIONS (2)
  - CORONARY ARTERY DISEASE [None]
  - DIARRHOEA [None]
